FAERS Safety Report 24612248 (Version 2)
Quarter: 2024Q4

REPORT INFORMATION
  Report Type: Spontaneous
  Country: CN (occurrence: CN)
  Receive Date: 20241113
  Receipt Date: 20241125
  Transmission Date: 20250114
  Serious: Yes (Other)
  Sender: BRISTOL-MYERS SQUIBB COMPANY
  Company Number: CN-BRISTOL-MYERS SQUIBB COMPANY-2024-174470

PATIENT
  Age: 71 Year
  Sex: Male
  Weight: 60 kg

DRUGS (3)
  1. NIVOLUMAB [Suspect]
     Active Substance: NIVOLUMAB
     Indication: Gastric cancer
     Dosage: DRUG USE-TIMES: 1 DRUG USE-DAYS: 1
     Route: 041
     Dates: start: 20231201, end: 20240315
  2. PACLITAXEL [Suspect]
     Active Substance: PACLITAXEL
     Indication: Gastric cancer
     Dates: start: 20231201, end: 20231201
  3. PACLITAXEL [Suspect]
     Active Substance: PACLITAXEL
     Dates: start: 20240315, end: 20240315

REACTIONS (4)
  - Hypoaesthesia [Recovering/Resolving]
  - Diarrhoea [Recovering/Resolving]
  - Myelosuppression [Recovering/Resolving]
  - Off label use [Unknown]

NARRATIVE: CASE EVENT DATE: 20240320
